FAERS Safety Report 10504500 (Version 2)
Quarter: 2014Q4

REPORT INFORMATION
  Report Type: Spontaneous
  Country: US (occurrence: US)
  Receive Date: 20141008
  Receipt Date: 20141008
  Transmission Date: 20150528
  Serious: No
  Sender: FDA-Public Use
  Company Number: US-ELI_LILLY_AND_COMPANY-US201110000740

PATIENT
  Age: 81 Year
  Sex: Female

DRUGS (2)
  1. ZYPREXA [Suspect]
     Active Substance: OLANZAPINE
     Indication: DEPRESSION
     Dosage: 5 MG, EACH EVENING
     Route: 048
  2. LYRICA [Concomitant]
     Active Substance: PREGABALIN

REACTIONS (9)
  - Off label use [Unknown]
  - Injury [Unknown]
  - Gait disturbance [Unknown]
  - Fall [Unknown]
  - Abdominal distension [Unknown]
  - Musculoskeletal discomfort [Unknown]
  - Waist circumference increased [Unknown]
  - Bronchitis [Unknown]
  - Weight increased [Unknown]

NARRATIVE: CASE EVENT DATE: 20111002
